FAERS Safety Report 4635914-0 (Version None)
Quarter: 2005Q2

REPORT INFORMATION
  Report Type: 
  Country: None (occurrence: None)
  Receive Date: 20050415
  Receipt Date: 20050405
  Transmission Date: 20051028
  Serious: Yes (Hospitalization)
  Sender: FDA-Public Use
  Company Number: IT-BRISTOL-MYERS SQUIBB COMPANY-12922118

PATIENT
  Sex: Male
  Weight: 58 kg

DRUGS (15)
  1. CARBOPLATIN [Suspect]
     Indication: MESOTHELIOMA
     Route: 042
     Dates: start: 20050218
  2. ALIMTA [Suspect]
     Indication: MESOTHELIOMA
     Route: 042
     Dates: start: 20050218
  3. VITAMIN B-12 [Concomitant]
     Dates: start: 20050214, end: 20050214
  4. FOLIC ACID [Concomitant]
     Dates: start: 20050204
  5. DEXAMETHASONE [Concomitant]
     Dates: start: 20050217, end: 20050219
  6. FUROSEMIDE [Concomitant]
     Indication: HYPERTENSION
     Dates: start: 20050214
  7. AMLODIPINE [Concomitant]
     Indication: HYPERTENSION
     Dates: start: 20050214
  8. LANSOPRAZOLE [Concomitant]
     Indication: HYPERTENSION
     Dates: start: 20050214
  9. VASTAREL [Concomitant]
     Indication: HYPERTENSION
     Dates: start: 20050214
  10. ENALAPRIL [Concomitant]
     Indication: HYPERTENSION
     Dates: start: 20050214
  11. ALLOPURINOL [Concomitant]
     Indication: GOUT
     Dates: start: 20050214
  12. CARDIOASPIRIN [Concomitant]
     Dates: start: 20050221
  13. ACTRAPID [Concomitant]
     Indication: DIABETES MELLITUS
     Dates: start: 20040101
  14. ACTRAPHANE [Concomitant]
     Indication: DIABETES MELLITUS
     Dates: start: 20040101
  15. SINVACOR [Concomitant]
     Indication: DYSLIPIDAEMIA
     Dates: start: 20050214

REACTIONS (6)
  - ANAEMIA [None]
  - BRONCHITIS ACUTE [None]
  - LEUKOPENIA [None]
  - MUCOSAL INFLAMMATION [None]
  - NEUTROPENIA [None]
  - THROMBOCYTOPENIA [None]
